FAERS Safety Report 7737016-3 (Version None)
Quarter: 2011Q3

REPORT INFORMATION
  Report Type: 
  Country: None (occurrence: None)
  Receive Date: 20110908
  Receipt Date: 20110825
  Transmission Date: 20111222
  Serious: Yes (Other)
  Sender: FDA-Public Use
  Company Number: US-ELI_LILLY_AND_COMPANY-US201108008897

PATIENT
  Sex: Female

DRUGS (4)
  1. VITAMIN D [Concomitant]
  2. FORTEO [Suspect]
     Indication: OSTEOPOROSIS
     Dosage: 20 UG, QD
     Dates: end: 20110821
  3. ASPIRIN [Concomitant]
  4. GABAPENTIN [Concomitant]
     Indication: NEUROPATHY PERIPHERAL

REACTIONS (8)
  - DRUG DOSE OMISSION [None]
  - HEART RATE DECREASED [None]
  - SPIDER VEIN [None]
  - HEADACHE [None]
  - BLOOD PRESSURE DECREASED [None]
  - PAIN [None]
  - VERTIGO [None]
  - DIZZINESS [None]
